FAERS Safety Report 5521882-6 (Version None)
Quarter: 2007Q4

REPORT INFORMATION
  Report Type: 
  Country: None (occurrence: None)
  Receive Date: 20071115
  Receipt Date: 20071102
  Transmission Date: 20080405
  Serious: Yes (Hospitalization)
  Sender: FDA-Public Use
  Company Number: DSA_30863_2007

PATIENT
  Age: 82 Year
  Sex: Male

DRUGS (6)
  1. ENALAPRIL MALEATE [Suspect]
     Indication: DRUG USE FOR UNKNOWN INDICATION
     Dosage: (DF ORAL)
     Route: 048
     Dates: end: 20070401
  2. AMARYL [Suspect]
     Indication: DRUG USE FOR UNKNOWN INDICATION
     Dosage: (3 MG QD ORAL)
     Route: 048
     Dates: end: 20070401
  3. GLUCOPHAGE [Suspect]
     Indication: DRUG USE FOR UNKNOWN INDICATION
     Dosage: (1 G TID ORAL)
     Route: 048
     Dates: end: 20070401
  4. TOREM /01036501/ (TOREM - TORSEMIDE) (NOT SPECIFIED) [Suspect]
     Indication: DRUG USE FOR UNKNOWN INDICATION
     Dosage: (1 DF QD ORAL)
     Route: 048
  5. PANTOZOL /01263202/ [Concomitant]
  6. SOTALOL HCL [Concomitant]

REACTIONS (8)
  - DRY SKIN [None]
  - HYPOGLYCAEMIA [None]
  - METABOLIC ACIDOSIS [None]
  - RALES [None]
  - RENAL FAILURE ACUTE [None]
  - SOMNOLENCE [None]
  - VENOUS PRESSURE JUGULAR DECREASED [None]
  - WEIGHT DECREASED [None]
